FAERS Safety Report 9060021 (Version 2)
Quarter: 2013Q1

REPORT INFORMATION
  Report Type: Spontaneous
  Country: US (occurrence: None)
  Receive Date: 20130207
  Receipt Date: 20130207
  Transmission Date: 20140127
  Serious: Yes (Other)
  Sender: FDA-Public Use
  Company Number: None

PATIENT
  Age: 79 Year
  Sex: Female
  Weight: 48.54 kg

DRUGS (1)
  1. SAVELLA [Suspect]
     Indication: FIBROMYALGIA
     Dosage: 12.5 MG, 1/2 TAB DAILY FOR 1 WEEK
     Route: 048
     Dates: start: 20120614

REACTIONS (5)
  - Gingival pain [None]
  - Toothache [None]
  - Middle insomnia [None]
  - Swollen tongue [None]
  - Choking sensation [None]
